FAERS Safety Report 6283356-7 (Version None)
Quarter: 2009Q3

REPORT INFORMATION
  Report Type: 
  Country: None (occurrence: None)
  Receive Date: 20090721
  Receipt Date: 20090721
  Transmission Date: 20100115
  Serious: Yes (Life-Threatening, Hospitalization)
  Sender: FDA-Public Use
  Company Number: None

PATIENT
  Sex: Female
  Weight: 52.1637 kg

DRUGS (1)
  1. AMBIEN CR [Suspect]
     Indication: SLEEP DISORDER
     Dosage: 1 AS NEEDED
     Dates: start: 20090614, end: 20090614

REACTIONS (7)
  - AMNESIA [None]
  - CONTUSION [None]
  - DRUG INEFFECTIVE [None]
  - HAEMORRHAGE [None]
  - PAIN [None]
  - SWELLING FACE [None]
  - WOUND SECRETION [None]
